FAERS Safety Report 9609141 (Version 1)
Quarter: 2013Q4

REPORT INFORMATION
  Report Type: Spontaneous
  Country: US (occurrence: None)
  Receive Date: 20131007
  Receipt Date: 20131007
  Transmission Date: 20140711
  Serious: Yes (Life-Threatening, Hospitalization)
  Sender: FDA-Public Use
  Company Number: None

PATIENT
  Age: 75 Year
  Sex: Male
  Weight: 68.2 kg

DRUGS (1)
  1. LUCENTIS [Suspect]
     Indication: OCULAR HYPERAEMIA
     Dosage: (0.05 ML)
     Route: 047
     Dates: start: 20120315, end: 20130910

REACTIONS (3)
  - Chest pain [None]
  - Atrial fibrillation [None]
  - Wrong technique in drug usage process [None]
